FAERS Safety Report 15306704 (Version 1)
Quarter: 2018Q3

REPORT INFORMATION
  Report Type: Spontaneous
  Country: DE (occurrence: DE)
  Receive Date: 20180822
  Receipt Date: 20180822
  Transmission Date: 20181010
  Serious: Yes (Hospitalization)
  Sender: FDA-Public Use
  Company Number: PHHY2014DE185256

PATIENT
  Age: 76 Year
  Sex: Female
  Weight: 90 kg

DRUGS (8)
  1. BEVACIZUMAB. [Suspect]
     Active Substance: BEVACIZUMAB
     Indication: BREAST CANCER
     Dosage: 900 MG, Q2W
     Route: 042
     Dates: start: 20140114
  2. TRINORM [Concomitant]
     Indication: PRODUCT USED FOR UNKNOWN INDICATION
     Dosage: 50 MG, QD
     Route: 048
     Dates: start: 1993
  3. BEVACIZUMAB. [Suspect]
     Active Substance: BEVACIZUMAB
     Dosage: 900 MG, Q2W
     Route: 042
     Dates: start: 20140128
  4. PACLITAXEL. [Suspect]
     Active Substance: PACLITAXEL
     Dosage: 128 MG, UNK
     Route: 042
     Dates: start: 20140227
  5. PACLITAXEL. [Suspect]
     Active Substance: PACLITAXEL
     Dosage: 128 MG, UNK
     Route: 042
     Dates: start: 20140128
  6. PACLITAXEL. [Suspect]
     Active Substance: PACLITAXEL
     Indication: BREAST CANCER
     Dosage: 128 MG, UNK
     Route: 042
     Dates: start: 20140121
  7. PACLITAXEL. [Suspect]
     Active Substance: PACLITAXEL
     Dosage: 128 MG, UNK
     Route: 042
     Dates: start: 20140211
  8. PACLITAXEL. [Suspect]
     Active Substance: PACLITAXEL
     Dosage: 128 MG, UNK
     Route: 042
     Dates: start: 20140220

REACTIONS (1)
  - Impaired healing [Recovered/Resolved]

NARRATIVE: CASE EVENT DATE: 20140211
